FAERS Safety Report 8811689 (Version 2)
Quarter: 2012Q4

REPORT INFORMATION
  Report Type: 
  Country: US (occurrence: US)
  Receive Date: 20120927
  Receipt Date: 20121106
  Transmission Date: 20130627
  Serious: No
  Sender: FDA-Public Use
  Company Number: PHEH2012US018690

PATIENT
  Sex: Male
  Weight: 77.55 kg

DRUGS (7)
  1. GLEEVEC [Suspect]
     Dosage: 200 mg, QD
     Route: 048
  2. GLEEVEC [Suspect]
     Dosage: 100 mg, QD
     Route: 048
  3. TASIGNA [Suspect]
  4. SPRYCEL [Suspect]
  5. ALBUTEROL [Concomitant]
  6. ADVAIR [Concomitant]
  7. SPIRACIN [Concomitant]

REACTIONS (2)
  - Muscle spasms [Recovered/Resolved]
  - Abdominal pain [Recovered/Resolved]
